FAERS Safety Report 9652508 (Version 1)
Quarter: 2013Q4

REPORT INFORMATION
  Report Type: Spontaneous
  Country: US (occurrence: None)
  Receive Date: 20131025
  Receipt Date: 20131025
  Transmission Date: 20140711
  Serious: Yes (Hospitalization)
  Sender: FDA-Public Use
  Company Number: 1713747-2013-99965

PATIENT
  Age: 66 Year
  Sex: Male
  Weight: 95 kg

DRUGS (2)
  1. SODIUM CHLORIDE [Suspect]
     Indication: PERITONEAL DIALYSIS
  2. SODIUM CHLORIDE [Suspect]
     Indication: RENAL FAILURE CHRONIC

REACTIONS (1)
  - Myocardial infarction [None]
